FAERS Safety Report 19635029 (Version 5)
Quarter: 2023Q1

REPORT INFORMATION
  Report Type: Spontaneous
  Country: IT (occurrence: IT)
  Receive Date: 20210730
  Receipt Date: 20230201
  Transmission Date: 20230418
  Serious: Yes (Other)
  Sender: FDA-Public Use
  Company Number: IT-GENETICSPA-GEN_20210591

PATIENT
  Age: 68 Year
  Sex: Male

DRUGS (9)
  1. ATORVASTATIN CALCIUM [Suspect]
     Active Substance: ATORVASTATIN CALCIUM
     Dosage: 40 MILLIGRAM
     Route: 048
  2. AMLODIPINE BESYLATE [Suspect]
     Active Substance: AMLODIPINE BESYLATE
     Dosage: 10 MILLIGRAM
     Route: 048
  3. ZOFENOPRIL [Suspect]
     Active Substance: ZOFENOPRIL
     Dosage: 30 MILLIGRAM
     Route: 048
  4. VALPROIC ACID [Suspect]
     Active Substance: VALPROIC ACID
     Dosage: 500 MILLIGRAM
     Route: 048
  5. DUTASTERIDE [Suspect]
     Active Substance: DUTASTERIDE
     Dosage: 0.5 MILLIGRAM
     Route: 048
  6. ASPIRIN [Suspect]
     Active Substance: ASPIRIN
     Dosage: UNK
     Route: 048
  7. ALFUZOSIN [Suspect]
     Active Substance: ALFUZOSIN
     Dosage: 10 MILLIGRAM
     Route: 048
  8. LITHIUM CARBONATE [Suspect]
     Active Substance: LITHIUM CARBONATE
     Dosage: 300 MICROGRAM
  9. LITHIUM CARBONATE [Suspect]
     Active Substance: LITHIUM CARBONATE
     Dosage: 300 MILLIGRAM
     Route: 048

REACTIONS (4)
  - Pulmonary interstitial emphysema syndrome [Recovering/Resolving]
  - Inferior vena cava dilatation [Recovering/Resolving]
  - Dyspnoea exertional [Unknown]
  - Lung disorder [Recovering/Resolving]
